FAERS Safety Report 10070514 (Version 2)
Quarter: 2014Q2

REPORT INFORMATION
  Report Type: Spontaneous
  Country: US (occurrence: US)
  Receive Date: 20140410
  Receipt Date: 20140414
  Transmission Date: 20141212
  Serious: No
  Sender: FDA-Public Use
  Company Number: US-BAYER-2014-052583

PATIENT
  Age: 71 Year
  Sex: Male
  Weight: 147 kg

DRUGS (2)
  1. ALEVE CAPLET [Suspect]
     Indication: ARTHRITIS
     Dosage: 4 DF, ONCE
     Route: 048
     Dates: start: 20140405, end: 20140405
  2. IBUPROFEN [Concomitant]
     Indication: ARTHRITIS
     Dosage: UNK UNK, PRN

REACTIONS (2)
  - Wrong drug administered [None]
  - Expired product administered [None]
